FAERS Safety Report 9611267 (Version 2)
Quarter: 2013Q4

REPORT INFORMATION
  Report Type: Report from Study
  Country: US (occurrence: US)
  Receive Date: 20131010
  Receipt Date: 20131018
  Transmission Date: 20140711
  Serious: Yes (Death)
  Sender: FDA-Public Use
  Company Number: US-ROCHE-1287202

PATIENT
  Age: 50 Year
  Sex: Male
  Weight: 58 kg

DRUGS (3)
  1. AVASTIN [Suspect]
     Indication: GLIOBLASTOMA MULTIFORME
     Route: 042
  2. AVASTIN [Suspect]
     Route: 042
     Dates: start: 20130719, end: 20130807
  3. DEXAMETHASONE [Concomitant]
     Indication: BRAIN OEDEMA
     Route: 048

REACTIONS (1)
  - Brain neoplasm malignant [Fatal]
